FAERS Safety Report 8124843-6 (Version None)
Quarter: 2012Q1

REPORT INFORMATION
  Report Type: 
  Country: None (occurrence: None)
  Receive Date: 20120209
  Receipt Date: 20120206
  Transmission Date: 20120608
  Serious: Yes (Other)
  Sender: FDA-Public Use
  Company Number: US-PFIZER INC-2012033150

PATIENT
  Sex: Female
  Weight: 49.433 kg

DRUGS (23)
  1. PREMPRO [Suspect]
     Indication: OSTEOPOROSIS PROPHYLAXIS
     Dosage: UNK, 2X/DAY
     Route: 048
  2. ALBUTEROL SULFATE [Concomitant]
     Indication: ASTHMA
     Dosage: UNK, 4X/DAY
  3. ZYRTEC [Concomitant]
     Dosage: UNK, DAILY
  4. AMBIEN [Concomitant]
     Dosage: UNK, DAILY AT NIGHT
  5. CELEBREX [Suspect]
     Indication: INTERVERTEBRAL DISC PROTRUSION
  6. NEXIUM [Concomitant]
     Dosage: UNK. 2X/DAY
  7. THEO-24 [Concomitant]
     Dosage: UNK, 2X/DAY
  8. VERAMYST [Concomitant]
     Dosage: UNK, DAILY
  9. CALCIUM CARBONATE [Concomitant]
     Dosage: UNK
  10. FORADIL [Concomitant]
     Indication: ASTHMA
     Dosage: UNK, 3X/DAY
  11. PULMICORT-100 [Concomitant]
     Indication: ASTHMA
     Dosage: UNK, 3X/DAY
  12. ACETAMINOPHEN [Concomitant]
     Dosage: UNK
  13. CALCIUM [Concomitant]
     Dosage: UNK
  14. MULTI-VITAMINS [Concomitant]
     Dosage: UNK
  15. SINGULAIR [Concomitant]
     Dosage: UNK, DAILY
  16. AMILORIDE [Concomitant]
     Dosage: UNK, ALTERNATE DAY
  17. VITAMIN D [Concomitant]
     Dosage: UNK
  18. PREDNISONE [Concomitant]
     Indication: MALAISE
     Dosage: 2.5 MG, AS NEEDED
  19. PREDNISONE [Concomitant]
     Indication: PAIN
  20. CELEBREX [Suspect]
     Indication: ARTHRITIS
     Dosage: 200 MG, 2X/DAY
     Route: 048
  21. CELEBREX [Suspect]
     Indication: SPINAL COLUMN STENOSIS
  22. SPIRIVA [Concomitant]
     Indication: ASTHMA
     Dosage: UNK, DAILY
  23. DIAZEPAM [Concomitant]
     Indication: STRESS
     Dosage: 1 OR 2 MG, AS NEEDED

REACTIONS (2)
  - PNEUMONIA [None]
  - INAPPROPRIATE SCHEDULE OF DRUG ADMINISTRATION [None]
